FAERS Safety Report 17430468 (Version 2)
Quarter: 2020Q1

REPORT INFORMATION
  Report Type: Spontaneous
  Country: US (occurrence: US)
  Receive Date: 20200218
  Receipt Date: 20200218
  Transmission Date: 20200409
  Serious: Yes (Death)
  Sender: FDA-Public Use
  Company Number: US-PFIZER INC-2020059984

PATIENT
  Age: 6 Day

DRUGS (1)
  1. POTASSIUM CHLORIDE. [Suspect]
     Active Substance: POTASSIUM CHLORIDE
     Indication: HEART DISEASE CONGENITAL
     Dosage: UNK (RECEIVED 10 TIMES THE PRESCRIBED DOSE)
     Route: 042

REACTIONS (2)
  - Medication error [Fatal]
  - Accidental overdose [Fatal]
